APPROVED DRUG PRODUCT: IONOSOL B AND DEXTROSE 5% IN PLASTIC CONTAINER
Active Ingredient: DEXTROSE; MAGNESIUM CHLORIDE; POTASSIUM CHLORIDE; POTASSIUM PHOSPHATE, DIBASIC; SODIUM CHLORIDE; SODIUM LACTATE; SODIUM PHOSPHATE, MONOBASIC ANHYDROUS
Strength: 5GM/100ML;53MG/100ML;100MG/100ML;100MG/100ML;180MG/100ML;280MG/100ML;16MG/100ML
Dosage Form/Route: INJECTABLE;INJECTION
Application: N019515 | Product #001
Applicant: HOSPIRA INC
Approved: May 8, 1986 | RLD: No | RS: No | Type: DISCN